FAERS Safety Report 5266800-3 (Version None)
Quarter: 2007Q1

REPORT INFORMATION
  Report Type: 
  Country: None (occurrence: None)
  Receive Date: 20070306
  Receipt Date: 20070220
  Transmission Date: 20070707
  Serious: Yes (Congenital Anomaly)
  Sender: FDA-Public Use
  Company Number: WSDF_00619

PATIENT
  Age: 24 Year
  Weight: 64 kg

DRUGS (3)
  1. ANTI-D (RHO) IMMUNOGLOBULIN [Suspect]
     Indication: PROPHYLAXIS
     Dosage: 500 IU DAILYL; IM
     Route: 030
     Dates: start: 20060806, end: 20060806
  2. ANTI-D (RHO) IMMUNOGLOBULIN [Suspect]
     Indication: PROPHYLAXIS
     Dosage: 500 IU DAILY;IM
     Route: 030
     Dates: start: 20060926, end: 20060926
  3. FOLIC ACID [Concomitant]

REACTIONS (2)
  - ACUTE MYELOID LEUKAEMIA [None]
  - CONGENITAL ANOMALY [None]
